FAERS Safety Report 21255223 (Version 1)
Quarter: 2022Q3

REPORT INFORMATION
  Report Type: Spontaneous
  Country: US (occurrence: US)
  Receive Date: 20220825
  Receipt Date: 20220825
  Transmission Date: 20221027
  Serious: No
  Sender: FDA-Public Use
  Company Number: US-BRISTOL-MYERS SQUIBB COMPANY-2022-094790

PATIENT
  Age: 83 Year
  Sex: Male
  Weight: 73 kg

DRUGS (23)
  1. REVLIMID [Suspect]
     Active Substance: LENALIDOMIDE
     Indication: Plasma cell myeloma
     Route: 048
     Dates: start: 20210513
  2. DICLOFENAC SODIUM [Concomitant]
     Active Substance: DICLOFENAC SODIUM
     Dosage: DOSE- 1%?ROUTE-EXTERNAL?FRE-PRN
     Route: 065
     Dates: start: 20220418
  3. AMLODIPINE BESYLATE [Concomitant]
     Active Substance: AMLODIPINE BESYLATE
     Route: 048
     Dates: start: 20220418
  4. ACETAMINOPHEN [Concomitant]
     Active Substance: ACETAMINOPHEN
     Dosage: PRN
     Route: 048
     Dates: start: 20210513
  5. ATENOLOL [Concomitant]
     Active Substance: ATENOLOL
     Dosage: FREQ- DAILY
     Route: 048
     Dates: start: 20210512
  6. DOXYCYCLINE HYCLATE [Concomitant]
     Active Substance: DOXYCYCLINE HYCLATE
     Dosage: FREQ-BID
     Route: 048
     Dates: start: 20210512, end: 20220418
  7. FLECAINIDE ACETATE [Concomitant]
     Active Substance: FLECAINIDE ACETATE
     Dosage: FREQ-BID
     Route: 048
     Dates: start: 20210512
  8. GABAPENTIN [Concomitant]
     Active Substance: GABAPENTIN
     Dosage: FREQ-TID
     Route: 048
     Dates: start: 20210512
  9. GOLYTELY [Concomitant]
     Active Substance: POLYETHYLENE GLYCOL 3350\POTASSIUM CHLORIDE\SODIUM BICARBONATE\SODIUM CHLORIDE\SODIUM SULFATE
     Dosage: FREQ-PRN
     Route: 048
     Dates: start: 20210512, end: 20220418
  10. HYDROMORPHONE HCL [Concomitant]
     Active Substance: HYDROMORPHONE HYDROCHLORIDE
     Route: 048
     Dates: start: 20220418
  11. MAGNESIUM GLUCONATE [Concomitant]
     Active Substance: MAGNESIUM GLUCONATE
     Route: 048
     Dates: start: 20210513, end: 20220418
  12. MIRALAX [Concomitant]
     Active Substance: POLYETHYLENE GLYCOL 3350
     Dosage: DOSE-17 GM/SCOOP?FREQ-HS
     Route: 048
     Dates: start: 20220418
  13. MOVE FREE [CALCIUM FRUCTOBORATE;HYALURONIC ACID] [Concomitant]
     Route: 048
     Dates: start: 20220418
  14. MUPIROCIN CALCIUM [Concomitant]
     Active Substance: MUPIROCIN CALCIUM
     Dosage: DOSE-2%?ROUTE-EX?FREQ-DAILY
     Route: 065
     Dates: start: 20210512, end: 20220418
  15. PREDNISONE [Concomitant]
     Active Substance: PREDNISONE
     Dosage: FREQ-BID
     Route: 048
  16. CALCIUM [Concomitant]
     Active Substance: CALCIUM
     Route: 048
     Dates: start: 20220418
  17. SENNA [Concomitant]
     Active Substance: SENNA LEAF\SENNOSIDES\SENNOSIDES A AND B
     Dosage: FREQ-PRN
     Route: 048
     Dates: start: 20210513
  18. SERTRALINE HYDROCHLORIDE [Concomitant]
     Active Substance: SERTRALINE HYDROCHLORIDE
     Route: 048
     Dates: start: 20210512
  19. TRAMADOL HCL [Concomitant]
     Active Substance: TRAMADOL HYDROCHLORIDE
     Dosage: FREQ-PRN
     Route: 048
     Dates: start: 20210512, end: 20220418
  20. VALTREX [Concomitant]
     Active Substance: VALACYCLOVIR HYDROCHLORIDE
     Dosage: FREQ-BID
     Route: 048
     Dates: start: 20210512
  21. VITAMIN D3 [Concomitant]
     Active Substance: CHOLECALCIFEROL
     Route: 048
     Dates: start: 20210512, end: 20220418
  22. XARELTO [Concomitant]
     Active Substance: RIVAROXABAN
     Route: 048
     Dates: start: 20210512
  23. ZYTIGA [Concomitant]
     Active Substance: ABIRATERONE ACETATE
     Route: 048
     Dates: start: 20210512

REACTIONS (1)
  - Insomnia [Unknown]

NARRATIVE: CASE EVENT DATE: 20220425
